FAERS Safety Report 6374411-1 (Version None)
Quarter: 2009Q3

REPORT INFORMATION
  Report Type: 
  Country: None (occurrence: None)
  Receive Date: 20090921
  Receipt Date: 20090921
  Transmission Date: 20100115
  Serious: Yes (Hospitalization, Disabling)
  Sender: FDA-Public Use
  Company Number: None

PATIENT
  Age: 79 Year
  Sex: Male
  Weight: 77.7 kg

DRUGS (16)
  1. LAPATINIB [Suspect]
     Indication: TONSIL CANCER
     Dosage: 1500MG DAILY ORAL
     Route: 048
     Dates: start: 20090720, end: 20090902
  2. ACETAMINOPHEN [Concomitant]
  3. ALBUTEROL [Concomitant]
  4. DEXTROSE [Concomitant]
  5. FAMOTIDINE [Concomitant]
  6. HALOPERIDOL [Concomitant]
  7. HEPARIN [Concomitant]
  8. HYDROMORPHONE [Concomitant]
  9. INSULIN [Concomitant]
  10. MAGNESIUM SULFATE [Concomitant]
  11. POTASSIUM CHLORIDE [Concomitant]
  12. SIMVASTATIN [Concomitant]
  13. FUROSEMIDE [Concomitant]
  14. LISINOPRIL [Concomitant]
  15. PSEUDOPHEDRINE [Concomitant]
  16. RADIATION THERAPY [Concomitant]

REACTIONS (9)
  - FALL [None]
  - HYPOTENSION [None]
  - IMPLANT SITE INFECTION [None]
  - PULMONARY EMBOLISM [None]
  - RIGHT VENTRICULAR FAILURE [None]
  - STAPHYLOCOCCAL INFECTION [None]
  - TACHYPNOEA [None]
  - TROPONIN INCREASED [None]
  - WHITE BLOOD CELL COUNT INCREASED [None]
